FAERS Safety Report 10368925 (Version 1)
Quarter: 2014Q3

REPORT INFORMATION
  Report Type: Spontaneous
  Country: US (occurrence: US)
  Receive Date: 20140807
  Receipt Date: 20140807
  Transmission Date: 20150326
  Serious: Yes (Other)
  Sender: FDA-Public Use
  Company Number: US-B.I. PHARMACEUTICALS,INC./RIDGEFIELD-2014-BI-35601BP

PATIENT
  Age: 67 Year
  Sex: Male

DRUGS (18)
  1. MORPHINE [Concomitant]
     Active Substance: MORPHINE
     Route: 042
  2. COREG [Concomitant]
     Active Substance: CARVEDILOL
     Dosage: 12.5 MG
     Route: 065
  3. PRADAXA [Suspect]
     Active Substance: DABIGATRAN ETEXILATE MESYLATE
     Indication: ATRIAL FIBRILLATION
     Dosage: 300 MG
     Route: 065
     Dates: end: 20121218
  4. HYDROCODONE [Concomitant]
     Active Substance: HYDROCODONE
     Dosage: DOSE PER APPLICATION: 1-2 TABS
     Route: 065
  5. METFORMIN [Concomitant]
     Active Substance: METFORMIN HYDROCHLORIDE
     Dosage: 1000 MG
     Route: 065
  6. BACTROBAN NASAL [Concomitant]
     Route: 065
  7. LOPRESSOR [Concomitant]
     Active Substance: METOPROLOL TARTRATE
     Route: 065
  8. TEPORMIN [Concomitant]
     Dosage: 100 MG
     Route: 065
  9. ASPIRIN. [Concomitant]
     Active Substance: ASPIRIN
     Dosage: 162 MG
     Route: 065
  10. LASIX [Concomitant]
     Active Substance: FUROSEMIDE
     Dosage: 80 MG
     Route: 065
  11. TORADOL [Concomitant]
     Active Substance: KETOROLAC TROMETHAMINE
     Dosage: 120 MG
     Route: 042
  12. DILTIAZEM [Concomitant]
     Active Substance: DILTIAZEM
     Dosage: 240 MG
     Route: 048
  13. POTASSIUM [Concomitant]
     Active Substance: POTASSIUM
     Dosage: 20 MEQ
     Route: 065
  14. TRAMADOL [Concomitant]
     Active Substance: TRAMADOL
     Dosage: DOSE PER APPLICATION: 50-100 MG
     Route: 048
  15. HUMALOG [Concomitant]
     Active Substance: INSULIN LISPRO
     Dosage: SLIDING SCALE
     Route: 065
  16. DEMEROL [Concomitant]
     Active Substance: MEPERIDINE HYDROCHLORIDE
     Route: 042
  17. ZOFRAN [Concomitant]
     Active Substance: ONDANSETRON HYDROCHLORIDE
     Dosage: 16 MG
     Route: 042
  18. CORDARONE [Concomitant]
     Active Substance: AMIODARONE HYDROCHLORIDE
     Dosage: 1400 MG
     Route: 065

REACTIONS (7)
  - Coagulopathy [Unknown]
  - Vomiting [Unknown]
  - Nausea [Unknown]
  - Upper gastrointestinal haemorrhage [Recovered/Resolved]
  - Haemolytic anaemia [Unknown]
  - Platelet dysfunction [Unknown]
  - Respiratory failure [Unknown]

NARRATIVE: CASE EVENT DATE: 20121129
